FAERS Safety Report 16384439 (Version 1)
Quarter: 2019Q2

REPORT INFORMATION
  Report Type: Spontaneous
  Country: CH (occurrence: CH)
  Receive Date: 20190603
  Receipt Date: 20190603
  Transmission Date: 20190711
  Serious: Yes (Congenital Anomaly, Other)
  Sender: FDA-Public Use
  Company Number: CH-009507513-1905CHE014307

PATIENT
  Age: 30 Year
  Sex: Female

DRUGS (5)
  1. PRALUENT [Suspect]
     Active Substance: ALIROCUMAB
     Indication: TYPE IIA HYPERLIPIDAEMIA
     Dosage: 150 MILLIGRAM, Q2M
     Route: 058
     Dates: end: 20180604
  2. EZETIMIBE. [Suspect]
     Active Substance: EZETIMIBE
     Dosage: 10 MILLIGRAM, QD
     Route: 048
     Dates: end: 20180702
  3. ASPIRIN CARDIO [Suspect]
     Active Substance: ASPIRIN
     Dosage: 100 MILLIGRAM, USUAL TREATMENT
     Route: 048
  4. XANAX [Suspect]
     Active Substance: ALPRAZOLAM
     Dosage: 0.25MG, AS NECESSARY
     Route: 048
     Dates: end: 20180702
  5. ROSUVASTATINE [Suspect]
     Active Substance: ROSUVASTATIN
     Dosage: 20 MILLIGRAM, QD
     Route: 048
     Dates: end: 20180702

REACTIONS (2)
  - Exposure during pregnancy [Recovered/Resolved]
  - Caesarean section [Unknown]

NARRATIVE: CASE EVENT DATE: 20190218
